FAERS Safety Report 7776764 (Version 2)
Quarter: 2013Q1

REPORT INFORMATION
  Report Type: Spontaneous
  Country: US (occurrence: US)
  Receive Date: 20110127
  Receipt Date: 20130128
  Transmission Date: 20140127
  Serious: Yes (Other)
  Sender: FDA-Public Use
  Company Number: US-MYLANLABS-2010S1005481

PATIENT
  Sex: Male

DRUGS (1)
  1. EXTENDED PHENYTOIN SODIUM CAPSULES, USP [Suspect]
     Dates: start: 200903

REACTIONS (1)
  - Stevens-Johnson syndrome [Not Recovered/Not Resolved]
